FAERS Safety Report 16246658 (Version 1)
Quarter: 2019Q2

REPORT INFORMATION
  Report Type: Spontaneous
  Country: FR (occurrence: FR)
  Receive Date: 20190427
  Receipt Date: 20190427
  Transmission Date: 20190711
  Serious: Yes (Other)
  Sender: FDA-Public Use
  Company Number: FR-ROCHE-2307646

PATIENT
  Age: 44 Year
  Sex: Male

DRUGS (1)
  1. XOLAIR [Suspect]
     Active Substance: OMALIZUMAB
     Indication: URTICARIA CHRONIC
     Route: 058
     Dates: start: 2017, end: 201903

REACTIONS (12)
  - Headache [Recovering/Resolving]
  - Lip swelling [Recovering/Resolving]
  - Oral disorder [Recovering/Resolving]
  - Bone pain [Recovering/Resolving]
  - Melanocytic naevus [Recovering/Resolving]
  - Acne [Recovering/Resolving]
  - Burning sensation [Recovering/Resolving]
  - Inappropriate schedule of product administration [Unknown]
  - Rectal haemorrhage [Recovered/Resolved]
  - Blister [Recovering/Resolving]
  - Skin plaque [Recovering/Resolving]
  - Pruritus [Recovering/Resolving]

NARRATIVE: CASE EVENT DATE: 2018
